FAERS Safety Report 15355256 (Version 1)
Quarter: 2018Q3

REPORT INFORMATION
  Report Type: Spontaneous
  Country: UM (occurrence: UM)
  Receive Date: 20180830
  Receipt Date: 20180830
  Transmission Date: 20181010
  Serious: No
  Sender: FDA-Public Use
  Company Number: None

PATIENT
  Age: 78 Year
  Sex: Female
  Weight: 63 kg

DRUGS (12)
  1. JANTOVEN [Concomitant]
     Active Substance: WARFARIN SODIUM
  2. POTASSIUM [Concomitant]
     Active Substance: POTASSIUM
  3. VITAMIN C [Concomitant]
     Active Substance: ASCORBIC ACID
  4. FUROSEMIDE. [Concomitant]
     Active Substance: FUROSEMIDE
  5. CARVEDILOL. [Concomitant]
     Active Substance: CARVEDILOL
  6. LEVOTHYROXINE. [Concomitant]
     Active Substance: LEVOTHYROXINE
  7. VALSARTAN 160MG LAST PRESCRIPTION 06/16/18 DEA #BW5462231 [Suspect]
     Active Substance: VALSARTAN
     Indication: BLOOD PRESSURE MEASUREMENT
     Dosage: ?          QUANTITY:30 TABLET(S);?
     Route: 048
     Dates: start: 20151001, end: 20180720
  8. SERTRALINE [Concomitant]
     Active Substance: SERTRALINE HYDROCHLORIDE
  9. TURMERIC [Concomitant]
     Active Substance: HERBALS\TURMERIC
  10. DIGOXIN. [Concomitant]
     Active Substance: DIGOXIN
  11. PROBIOTICS [Concomitant]
     Active Substance: PROBIOTICS NOS
  12. COQ10 [Concomitant]
     Active Substance: UBIDECARENONE

REACTIONS (3)
  - Ocular vascular disorder [None]
  - Drug ineffective [None]
  - Recalled product [None]

NARRATIVE: CASE EVENT DATE: 20180822
